FAERS Safety Report 23699199 (Version 1)
Quarter: 2024Q2

REPORT INFORMATION
  Report Type: Spontaneous
  Country: US (occurrence: US)
  Receive Date: 20240402
  Receipt Date: 20240402
  Transmission Date: 20240716
  Serious: No
  Sender: FDA-Public Use
  Company Number: US-THEA-2023001116

PATIENT
  Age: 55 Year
  Sex: Female

DRUGS (2)
  1. ZIOPTAN [Suspect]
     Active Substance: TAFLUPROST
     Indication: Glaucoma
     Dosage: BOTH EYES EVERY EVENING
     Route: 047
     Dates: start: 20230626
  2. PRILOSEC [Concomitant]
     Active Substance: OMEPRAZOLE MAGNESIUM
     Indication: Product used for unknown indication

REACTIONS (4)
  - Hypersensitivity [Unknown]
  - Headache [Unknown]
  - Thermal burns of eye [Unknown]
  - Ocular hyperaemia [Unknown]

NARRATIVE: CASE EVENT DATE: 20230626
